FAERS Safety Report 25381003 (Version 5)
Quarter: 2025Q4

REPORT INFORMATION
  Report Type: Report from Study
  Country: US (occurrence: US)
  Receive Date: 20250530
  Receipt Date: 20251013
  Transmission Date: 20260118
  Serious: No
  Sender: MALLINCKRODT
  Company Number: US-MALLINCKRODT-MNK202502380

PATIENT
  Age: 71 Year
  Sex: Female

DRUGS (3)
  1. CORTICOTROPIN [Suspect]
     Active Substance: CORTICOTROPIN
     Indication: Polymyositis
     Dosage: 80 UNITS
     Route: 058
  2. CORTICOTROPIN [Suspect]
     Active Substance: CORTICOTROPIN
     Indication: Polymyositis
     Dosage: UNKNOWN (RESTARTED)
     Dates: start: 20250415, end: 2025
  3. CORTICOTROPIN [Suspect]
     Active Substance: CORTICOTROPIN
     Dosage: 80 UNITS (DOSE REDUCED)

REACTIONS (10)
  - Arthralgia [Recovered/Resolved]
  - Muscle twitching [Unknown]
  - Dyspnoea [Unknown]
  - Chromaturia [Recovering/Resolving]
  - Memory impairment [Recovering/Resolving]
  - Sweat discolouration [Recovering/Resolving]
  - Faeces discoloured [Recovering/Resolving]
  - Joint swelling [Recovered/Resolved]
  - Injection site mass [Unknown]
  - Asthenia [Unknown]

NARRATIVE: CASE EVENT DATE: 20250401
